FAERS Safety Report 9648351 (Version 1)
Quarter: 2013Q4

REPORT INFORMATION
  Report Type: Spontaneous
  Country: US (occurrence: None)
  Receive Date: 20131025
  Receipt Date: 20131025
  Transmission Date: 20140711
  Serious: No
  Sender: FDA-Public Use
  Company Number: None

PATIENT
  Age: 41 Year
  Sex: Female
  Weight: 79.38 kg

DRUGS (1)
  1. ESCITALOPRAM [Suspect]
     Indication: ANXIETY
     Dosage: 1 PILL ONCE DAILY
     Route: 048
     Dates: start: 20120401, end: 20120415

REACTIONS (3)
  - Product substitution issue [None]
  - Drug withdrawal syndrome [None]
  - Drug ineffective [None]
